FAERS Safety Report 25292936 (Version 1)
Quarter: 2025Q2

REPORT INFORMATION
  Report Type: Spontaneous
  Country: US (occurrence: US)
  Receive Date: 20250510
  Receipt Date: 20250510
  Transmission Date: 20250716
  Serious: No
  Sender: SANOFI AVENTIS
  Company Number: US-SA-2024SA346037

PATIENT
  Age: 66 Year
  Sex: Female

DRUGS (16)
  1. DUPIXENT [Suspect]
     Active Substance: DUPILUMAB
     Indication: Asthma
     Dosage: 300 MG, QOW
     Route: 058
     Dates: start: 20241018
  2. PEPCID [Concomitant]
     Active Substance: FAMOTIDINE
  3. TUMS [Concomitant]
     Active Substance: CALCIUM CARBONATE
  4. VOQUEZNA [Concomitant]
     Active Substance: VONOPRAZAN FUMARATE
  5. ALBUTEROL [Concomitant]
     Active Substance: ALBUTEROL
  6. ATENOLOL [Concomitant]
     Active Substance: ATENOLOL
  7. DALIRESP [Concomitant]
     Active Substance: ROFLUMILAST
  8. PANTOPRAZOLE [Concomitant]
     Active Substance: PANTOPRAZOLE
  9. PRAVASTATIN [Concomitant]
     Active Substance: PRAVASTATIN
  10. PREDNISONE [Concomitant]
     Active Substance: PREDNISONE
  11. SINGULAIR [Concomitant]
     Active Substance: MONTELUKAST SODIUM
  12. SYMBICORT [Concomitant]
     Active Substance: BUDESONIDE\FORMOTEROL FUMARATE DIHYDRATE
  13. AMMONIUM LACTATE [Concomitant]
     Active Substance: AMMONIUM LACTATE
  14. ARFORMOTEROL [Concomitant]
     Active Substance: ARFORMOTEROL
  15. HYDROCODONE [Concomitant]
     Active Substance: HYDROCODONE
  16. SPIRIVA [Concomitant]
     Active Substance: TIOTROPIUM BROMIDE MONOHYDRATE

REACTIONS (1)
  - Drug ineffective [Unknown]
